FAERS Safety Report 8916793 (Version 1)
Quarter: 2012Q4

REPORT INFORMATION
  Report Type: 
  Country: US (occurrence: US)
  Receive Date: 20121120
  Receipt Date: 20121120
  Transmission Date: 20130627
  Serious: No
  Sender: FDA-Public Use
  Company Number: US-PFIZER INC-2012290039

PATIENT
  Age: 61 Year
  Sex: Female
  Weight: 54.42 kg

DRUGS (2)
  1. LYRICA [Suspect]
     Indication: NEUROPATHY
     Dosage: 50 mg, 3x/day
     Route: 048
     Dates: start: 201210, end: 2012
  2. LYRICA [Suspect]
     Dosage: 100 mg, 2x/day
     Route: 048
     Dates: start: 2012

REACTIONS (1)
  - Pain [Unknown]
